FAERS Safety Report 5251611-5 (Version None)
Quarter: 2007Q1

REPORT INFORMATION
  Report Type: 
  Country: None (occurrence: None)
  Receive Date: 20070228
  Receipt Date: 20061121
  Transmission Date: 20070707
  Serious: No
  Sender: FDA-Public Use
  Company Number: US-GLAXOSMITHKLINE-A0621520A

PATIENT
  Age: 42 Year
  Sex: Female
  Weight: 60.9 kg

DRUGS (4)
  1. LAMICTAL [Suspect]
     Indication: BIPOLAR DISORDER
     Route: 048
     Dates: end: 20060922
  2. EFFEXOR [Concomitant]
     Route: 048
  3. MAXALT [Concomitant]
     Route: 048
  4. ACIPHEX [Concomitant]
     Route: 048

REACTIONS (1)
  - LYMPHADENOPATHY [None]
